FAERS Safety Report 19661578 (Version 11)
Quarter: 2025Q1

REPORT INFORMATION
  Report Type: Spontaneous
  Country: US (occurrence: US)
  Receive Date: 20210805
  Receipt Date: 20250228
  Transmission Date: 20250409
  Serious: Yes (Other)
  Sender: PFIZER
  Company Number: US-PFIZER INC-202100991659

PATIENT
  Age: 76 Year
  Sex: Female
  Weight: 54.875 kg

DRUGS (2)
  1. PREMARIN [Suspect]
     Active Substance: ESTROGENS, CONJUGATED
     Indication: Atrophic vulvovaginitis
     Dosage: (0.5G-2G), DAILY
  2. PREMARIN [Suspect]
     Active Substance: ESTROGENS, CONJUGATED
     Indication: Prophylaxis urinary tract infection

REACTIONS (7)
  - Lymphoma [Recovering/Resolving]
  - Off label use [Unknown]
  - Expired product administered [Unknown]
  - Fatigue [Unknown]
  - Brain fog [Unknown]
  - Poor quality sleep [Unknown]
  - Memory impairment [Unknown]

NARRATIVE: CASE EVENT DATE: 20200329
